FAERS Safety Report 4522354-8 (Version None)
Quarter: 2004Q4

REPORT INFORMATION
  Report Type: 
  Country: None (occurrence: None)
  Receive Date: 20041209
  Receipt Date: 20031109
  Transmission Date: 20050328
  Serious: Yes (Hospitalization)
  Sender: FDA-Public Use
  Company Number: US-GLAXOSMITHKLINE-B0314536A

PATIENT
  Age: 30 Year
  Sex: Male

DRUGS (4)
  1. LITHIUM [Suspect]
     Indication: BIPOLAR DISORDER
     Dosage: 450MG TWICE PER DAY
  2. RISPERIDONE [Suspect]
     Indication: BIPOLAR DISORDER
     Route: 065
  3. OLANZAPINE [Concomitant]
     Route: 065
  4. DIVALPROEX SODIUM [Concomitant]

REACTIONS (15)
  - CEREBRAL ATROPHY [None]
  - CONFUSIONAL STATE [None]
  - DELIRIUM [None]
  - DELUSION [None]
  - HALLUCINATION [None]
  - HALLUCINATION, AUDITORY [None]
  - HYPERTENSION [None]
  - HYPERTHERMIA [None]
  - INSOMNIA [None]
  - MUSCLE CONTRACTIONS INVOLUNTARY [None]
  - MUSCLE RIGIDITY [None]
  - NEUROLEPTIC MALIGNANT SYNDROME [None]
  - SPEECH DISORDER [None]
  - TACHYCARDIA [None]
  - TREMOR [None]
